FAERS Safety Report 9264409 (Version 2)
Quarter: 2013Q2

REPORT INFORMATION
  Report Type: Spontaneous
  Country: IL (occurrence: IL)
  Receive Date: 20130430
  Receipt Date: 20130513
  Transmission Date: 20140414
  Serious: Yes (Hospitalization, Other)
  Sender: FDA-Public Use
  Company Number: IL-B.I. PHARMACEUTICALS,INC./RIDGEFIELD-2013-AP-00337RI

PATIENT
  Sex: Male

DRUGS (2)
  1. PRADAXA [Suspect]
     Indication: ATRIAL FIBRILLATION
     Dosage: 220 MG
     Route: 048
  2. PLAVIX [Concomitant]
     Dosage: 75 MG
     Dates: end: 20130425

REACTIONS (4)
  - Angina pectoris [Recovered/Resolved]
  - Haemoglobin decreased [Recovered/Resolved]
  - Gastritis erosive [Not Recovered/Not Resolved]
  - Duodenal ulcer [Not Recovered/Not Resolved]
